FAERS Safety Report 23841231 (Version 1)
Quarter: 2024Q2

REPORT INFORMATION
  Report Type: Spontaneous
  Country: EG (occurrence: EG)
  Receive Date: 20240510
  Receipt Date: 20240510
  Transmission Date: 20240716
  Serious: Yes (Other)
  Sender: FDA-Public Use
  Company Number: EG-HIKMA PHARMACEUTICALS-EG-H14001-24-03818

PATIENT
  Age: 55 Year
  Sex: Female
  Weight: 110 kg

DRUGS (3)
  1. DOXORUBICIN [Suspect]
     Active Substance: DOXORUBICIN
     Indication: Uterine leiomyosarcoma
     Dosage: 52.5 MILLIGRAM, ON DAY 1 TO DAY 3
     Route: 041
     Dates: start: 20240323
  2. IFOSFAMIDE [Suspect]
     Active Substance: IFOSFAMIDE
     Indication: Uterine leiomyosarcoma
     Dosage: 5250 MILLIGRAM, DAY 1 TO DAY 4, EVERY 21 DAYS
     Route: 041
     Dates: start: 20240323
  3. MESNA [Suspect]
     Active Substance: MESNA
     Indication: Uterine leiomyosarcoma
     Dosage: 1050 MILLIGRAM, DAY 1 TO DAY 4, BEFORE HOLOXAN AND AFTER 4,8 HOURS, EVERY 21 DAYS
     Route: 041
     Dates: start: 20240323

REACTIONS (2)
  - Pancytopenia [Recovering/Resolving]
  - Hallucination [Recovered/Resolved]

NARRATIVE: CASE EVENT DATE: 20240402
